FAERS Safety Report 13014699 (Version 4)
Quarter: 2017Q1

REPORT INFORMATION
  Report Type: Report from Study
  Country: US (occurrence: US)
  Receive Date: 20161209
  Receipt Date: 20170329
  Transmission Date: 20170428
  Serious: Yes (Hospitalization)
  Sender: FDA-Public Use
  Company Number: US-TARO-2016TAR01001

PATIENT
  Age: 72 Year
  Sex: Male
  Weight: 84.81 kg

DRUGS (14)
  1. WELLBUTRIN [Concomitant]
     Active Substance: BUPROPION HYDROCHLORIDE
     Indication: DEPRESSION
     Dosage: 150 MG, 2X/DAY
     Route: 048
     Dates: start: 2000
  2. AMLODIPINE [Concomitant]
     Active Substance: AMLODIPINE BESYLATE
  3. LISINOPRIL. [Concomitant]
     Active Substance: LISINOPRIL
     Indication: CORONARY ARTERY DISEASE
     Dosage: 5 MG, 2X/DAY
     Route: 048
     Dates: start: 2001
  4. FUROSEMIDE. [Concomitant]
     Active Substance: FUROSEMIDE
     Indication: CORONARY ARTERY DISEASE
     Dosage: 40 MG, 1X/DAY
     Route: 048
     Dates: start: 2001
  5. ALPRAZOLAM. [Concomitant]
     Active Substance: ALPRAZOLAM
     Indication: ANXIETY
     Dosage: 0.5 MG, 1X/DAY
     Route: 048
     Dates: start: 2000
  6. AZELAIC ACID TOPICAL GEL 15% [Suspect]
     Active Substance: AZELAIC ACID
     Indication: ROSACEA
     Dosage: 1 DOSE, 2X/DAY
     Route: 061
     Dates: start: 20161005, end: 20161222
  7. ASPIRIN. [Concomitant]
     Active Substance: ASPIRIN
     Indication: CORONARY ARTERY DISEASE
     Dosage: 81 MG, 1X/DAY
     Route: 048
     Dates: start: 2001
  8. EFFEXOR [Concomitant]
     Active Substance: VENLAFAXINE HYDROCHLORIDE
     Indication: DEPRESSION
     Dosage: 225 MG, 1X/DAY
     Route: 048
     Dates: start: 2000
  9. VITAMIN B12 [Concomitant]
     Active Substance: CYANOCOBALAMIN
     Indication: VITAMIN B12 DEFICIENCY
     Dosage: 100 MG, 1X/MONTH
     Route: 030
     Dates: start: 2016
  10. COREG [Concomitant]
     Active Substance: CARVEDILOL
     Indication: CORONARY ARTERY DISEASE
     Dosage: 12.5 MG, 1X/DAY
     Dates: start: 2001
  11. ATORVASTATIN [Concomitant]
     Active Substance: ATORVASTATIN
     Indication: CORONARY ARTERY DISEASE
     Dosage: 80 MG, 1X/DAY
     Route: 048
     Dates: start: 2014
  12. NIACIN. [Concomitant]
     Active Substance: NIACIN
     Indication: CORONARY ARTERY DISEASE
     Dosage: 1000 MG, 1X/DAY
     Route: 048
     Dates: start: 2001
  13. PLAVIX [Concomitant]
     Active Substance: CLOPIDOGREL BISULFATE
     Indication: CORONARY ARTERY DISEASE
     Dosage: 75 MG, 1X/DAY
     Route: 048
     Dates: start: 2001
  14. SPERMICIDE [Concomitant]
     Indication: CONTRACEPTION
     Dosage: 1 APPLICATION, AS NEEDED
     Route: 061
     Dates: start: 20161005

REACTIONS (1)
  - Angina pectoris [Recovered/Resolved]

NARRATIVE: CASE EVENT DATE: 20161128
